FAERS Safety Report 13168300 (Version 2)
Quarter: 2017Q1

REPORT INFORMATION
  Report Type: Spontaneous
  Country: FR (occurrence: FR)
  Receive Date: 20170131
  Receipt Date: 20170217
  Transmission Date: 20170428
  Serious: Yes (Death, Hospitalization)
  Sender: FDA-Public Use
  Company Number: FR-TEVA-732517ROM

PATIENT
  Age: 85 Year
  Sex: Male

DRUGS (10)
  1. EUPANTOL 20 MG [Concomitant]
     Dosage: 1 DOSAGE FORMS DAILY;
     Route: 048
  2. COUMADINE 2 MG [Concomitant]
     Active Substance: WARFARIN SODIUM
     Dosage: 1 DOSAGE FORMS DAILY;
     Route: 048
  3. TEVAGRASTIM 30 MUI/0.5 ML [Suspect]
     Active Substance: FILGRASTIM
     Indication: NEUTROPENIA
     Dosage: EXACT FORM: SOLUTION FOR INJECTION OR INFUSION
     Route: 058
     Dates: start: 20160101, end: 20160101
  4. SMECTA [Concomitant]
     Active Substance: MONTMORILLONITE
     Route: 048
  5. FLAGYL [Concomitant]
     Active Substance: METRONIDAZOLE\METRONIDAZOLE HYDROCHLORIDE
     Dosage: 3 DOSAGE FORMS DAILY;
     Route: 048
     Dates: start: 20151228, end: 20160111
  6. VIDAZA [Suspect]
     Active Substance: AZACITIDINE
     Indication: MYELODYSPLASTIC SYNDROME
     Route: 058
     Dates: start: 201511, end: 20151228
  7. ZARZIO 30 MU/0.5 ML [Suspect]
     Active Substance: FILGRASTIM
     Indication: NEUTROPENIA
     Dosage: .5 DOSAGE FORMS DAILY;
     Route: 058
     Dates: start: 20151228, end: 20151230
  8. LASILIX 40 MG [Concomitant]
     Active Substance: FUROSEMIDE
     Dosage: 1 DOSAGE FORMS DAILY;
     Route: 048
  9. SOTALOL HYDROCHLORIDE. [Concomitant]
     Active Substance: SOTALOL HYDROCHLORIDE
     Dosage: 80 MILLIGRAM DAILY;
     Route: 048
  10. DOLIPRANE [Concomitant]
     Active Substance: ACETAMINOPHEN
     Dosage: 4 GRAM DAILY;
     Route: 048

REACTIONS (1)
  - Interstitial lung disease [Fatal]

NARRATIVE: CASE EVENT DATE: 20160102
